FAERS Safety Report 5869813-3 (Version None)
Quarter: 2008Q3

REPORT INFORMATION
  Report Type: 
  Country: None (occurrence: None)
  Receive Date: 20080902
  Receipt Date: 20080825
  Transmission Date: 20090109
  Serious: Yes (Disabling)
  Sender: FDA-Public Use
  Company Number: OSCN-PR-0808S-0510

PATIENT
  Age: 70 Year
  Sex: Female

DRUGS (8)
  1. OMNISCAN [Suspect]
     Indication: ANGIOPLASTY
     Dosage: SEE IMAGE
     Dates: start: 20060322, end: 20060322
  2. OMNISCAN [Suspect]
     Indication: VENOUS STENOSIS
     Dosage: SEE IMAGE
     Dates: start: 20060322, end: 20060322
  3. OMNISCAN [Suspect]
     Indication: ANGIOPLASTY
     Dosage: SEE IMAGE
     Dates: start: 20060329, end: 20060329
  4. OMNISCAN [Suspect]
     Indication: VENOUS STENOSIS
     Dosage: SEE IMAGE
     Dates: start: 20060329, end: 20060329
  5. OMNISCAN [Suspect]
     Indication: ANGIOPLASTY
     Dosage: SEE IMAGE
     Dates: start: 20060805, end: 20060805
  6. OMNISCAN [Suspect]
     Indication: VENOUS STENOSIS
     Dosage: SEE IMAGE
     Dates: start: 20060805, end: 20060805
  7. OMNISCAN [Suspect]
     Indication: ANGIOPLASTY
     Dosage: SEE IMAGE
     Dates: start: 20061218, end: 20061218
  8. OMNISCAN [Suspect]
     Indication: VENOUS STENOSIS
     Dosage: SEE IMAGE
     Dates: start: 20061218, end: 20061218

REACTIONS (4)
  - ARTERIOVENOUS GRAFT THROMBOSIS [None]
  - DEPRESSION [None]
  - NEPHROGENIC SYSTEMIC FIBROSIS [None]
  - VASCULAR STENOSIS [None]
